FAERS Safety Report 16887030 (Version 2)
Quarter: 2020Q3

REPORT INFORMATION
  Report Type: Spontaneous
  Country: PT (occurrence: PT)
  Receive Date: 20191004
  Receipt Date: 20200529
  Transmission Date: 20201104
  Serious: Yes (Disabling, Other)
  Sender: FDA-Public Use
  Company Number: PT-ELI_LILLY_AND_COMPANY-PT201909013244

PATIENT
  Age: 71 Year
  Sex: Female
  Weight: 73 kg

DRUGS (7)
  1. GEMCITABINE HYDROCHLORIDE. [Suspect]
     Active Substance: GEMCITABINE HYDROCHLORIDE
     Indication: DIFFUSE LARGE B-CELL LYMPHOMA
     Dosage: UNK UNK, UNKNOWN
     Route: 065
     Dates: start: 20181108, end: 20190116
  2. MABTHERA [Suspect]
     Active Substance: RITUXIMAB
     Dosage: UNK UNK, UNKNOWN
     Route: 065
     Dates: start: 20181108, end: 20190116
  3. POLATUZUMAB VEDOTIN. [Suspect]
     Active Substance: POLATUZUMAB VEDOTIN
     Indication: DIFFUSE LARGE B-CELL LYMPHOMA
     Dosage: UNK, UNKNOWN
     Route: 065
     Dates: start: 20191023
  4. MABTHERA [Suspect]
     Active Substance: RITUXIMAB
     Dosage: UNK
     Route: 065
     Dates: start: 20191023
  5. BENDAMUSTINE [Suspect]
     Active Substance: BENDAMUSTINE
     Indication: DIFFUSE LARGE B-CELL LYMPHOMA
     Dosage: UNK UNK, UNKNOWN
     Route: 065
     Dates: start: 20191023
  6. OXALIPLATIN. [Suspect]
     Active Substance: OXALIPLATIN
     Indication: DIFFUSE LARGE B-CELL LYMPHOMA
     Dosage: UNK UNK, UNKNOWN
     Route: 065
     Dates: start: 20181108, end: 20190116
  7. MABTHERA [Suspect]
     Active Substance: RITUXIMAB
     Indication: DIFFUSE LARGE B-CELL LYMPHOMA
     Dosage: UNK, UNKNOWN
     Route: 065
     Dates: start: 20170728, end: 20171110

REACTIONS (7)
  - Nausea [Recovered/Resolved]
  - Diffuse large B-cell lymphoma refractory [Unknown]
  - Diarrhoea [Unknown]
  - Off label use [Unknown]
  - Neuropathy peripheral [Recovering/Resolving]
  - Pyrexia [Unknown]
  - Fatigue [Recovered/Resolved]
